FAERS Safety Report 5764835-5 (Version None)
Quarter: 2008Q2

REPORT INFORMATION
  Report Type: 
  Country: None (occurrence: None)
  Receive Date: 20080609
  Receipt Date: 20080609
  Transmission Date: 20081010
  Serious: Yes (Hospitalization)
  Sender: FDA-Public Use
  Company Number: None

PATIENT
  Age: 42 Year
  Sex: Female
  Weight: 60.3 kg

DRUGS (3)
  1. OXALIPLATIN [Suspect]
     Indication: OESOPHAGEAL ADENOCARCINOMA
     Dosage: 85 MG / M2  DAY 1, DAY 15, DAY 29  IV
     Route: 042
     Dates: start: 20070709, end: 20070806
  2. RADIATION [Suspect]
     Dosage: DAILY
     Dates: start: 20070709, end: 20070812
  3. CAPECITABINE [Suspect]
     Indication: OESOPHAGEAL ADENOCARCINOMA
     Dosage: 1150MG  PO  BID  MON-FRIDAY
     Route: 048
     Dates: start: 20070719, end: 20070812

REACTIONS (4)
  - DYSPHAGIA [None]
  - FATIGUE [None]
  - OESOPHAGITIS [None]
  - ORAL INTAKE REDUCED [None]
